FAERS Safety Report 14128217 (Version 4)
Quarter: 2020Q3

REPORT INFORMATION
  Report Type: Spontaneous
  Country: CO (occurrence: CO)
  Receive Date: 20171026
  Receipt Date: 20200710
  Transmission Date: 20201102
  Serious: Yes (Death)
  Sender: FDA-Public Use
  Company Number: CO-ORPHAN EUROPE-2031531

PATIENT
  Age: 30 Month
  Sex: Male
  Weight: 13 kg

DRUGS (2)
  1. CARBAGLU [Suspect]
     Active Substance: CARGLUMIC ACID
     Route: 048
  2. CARBAGLU [Suspect]
     Active Substance: CARGLUMIC ACID
     Indication: HYPERAMMONAEMIA
     Route: 048
     Dates: start: 20171016, end: 20171017

REACTIONS (3)
  - Death [Fatal]
  - Cardiac arrest [Unknown]
  - Off label use [Recovered/Resolved]

NARRATIVE: CASE EVENT DATE: 20171016
